FAERS Safety Report 10375546 (Version 2)
Quarter: 2014Q4

REPORT INFORMATION
  Report Type: Spontaneous
  Country: CN (occurrence: CN)
  Receive Date: 20140811
  Receipt Date: 20141103
  Transmission Date: 20150528
  Serious: Yes (Death, Other)
  Sender: FDA-Public Use
  Company Number: CN-PFIZER INC-2014220055

PATIENT
  Age: 5 Decade
  Sex: Female

DRUGS (6)
  1. GABAPENTIN. [Suspect]
     Active Substance: GABAPENTIN
     Dosage: 100 MG, 3X/DAY (Q8H)
     Route: 048
     Dates: start: 20140729
  2. GABAPENTIN. [Suspect]
     Active Substance: GABAPENTIN
     Indication: CANCER PAIN
     Dosage: 900 MG, SINGLE
     Route: 048
     Dates: start: 20140728, end: 20140728
  3. MORPHINE HYDROCHLORIDE [Concomitant]
     Active Substance: MORPHINE HYDROCHLORIDE
     Dosage: 50 MG, DAILY
  4. MS CONTIN [Suspect]
     Active Substance: MORPHINE SULFATE
     Dosage: 360 MG, 2X/DAY
     Route: 048
     Dates: start: 20140725, end: 20140728
  5. MS CONTIN [Suspect]
     Active Substance: MORPHINE SULFATE
     Indication: CANCER PAIN
     Dosage: 400 MG, 2X/DAY (Q12H)
     Route: 048
  6. MS CONTIN [Suspect]
     Active Substance: MORPHINE SULFATE
     Dosage: 390 MG, 2X/DAY
     Route: 048
     Dates: start: 20140729

REACTIONS (12)
  - Accidental overdose [Fatal]
  - Inadequate analgesia [Fatal]
  - Intestinal haemorrhage [Fatal]
  - Disease progression [Fatal]
  - Cervix carcinoma [Fatal]
  - Syncope [Fatal]
  - Seizure [Fatal]
  - Somnolence [Fatal]
  - Intestinal fistula [Fatal]
  - Consciousness fluctuating [Fatal]
  - Heart rate increased [Fatal]
  - Loss of consciousness [Fatal]

NARRATIVE: CASE EVENT DATE: 20140728
